FAERS Safety Report 9251176 (Version 2)
Quarter: 2014Q1

REPORT INFORMATION
  Report Type: Spontaneous
  Country: US (occurrence: US)
  Receive Date: 20130424
  Receipt Date: 20140203
  Transmission Date: 20141002
  Serious: Yes (Hospitalization, Disabling, Other)
  Sender: FDA-Public Use
  Company Number: US-ASTRAZENECA-2013SE27331

PATIENT
  Age: 19497 Day
  Sex: Female
  Weight: 99.8 kg

DRUGS (9)
  1. NEXIUM [Suspect]
     Indication: GASTROOESOPHAGEAL REFLUX DISEASE
     Route: 048
     Dates: start: 2006
  2. RANITIDINE [Concomitant]
  3. GAVISCON [Concomitant]
  4. SYNTHROID [Concomitant]
  5. IBUPROFEN [Concomitant]
     Indication: PAIN
     Dosage: AS NEEDED
  6. ETODOLAC [Concomitant]
  7. ADVAIR [Concomitant]
  8. DICLOFENAC [Concomitant]
  9. HYDROXYZ HCL [Concomitant]

REACTIONS (9)
  - Pubis fracture [Unknown]
  - Pelvic fracture [Unknown]
  - Kidney infection [Unknown]
  - Osteoporosis [Unknown]
  - Bone disorder [Unknown]
  - Tendonitis [Unknown]
  - Spondylolisthesis [Unknown]
  - Spondylolysis [Unknown]
  - Upper limb fracture [Unknown]
